FAERS Safety Report 10620075 (Version 1)
Quarter: 2014Q4

REPORT INFORMATION
  Report Type: Spontaneous
  Country: IT (occurrence: None)
  Receive Date: 20141128
  Receipt Date: 20141128
  Transmission Date: 20150529
  Serious: Yes (Hospitalization)
  Sender: FDA-Public Use
  Company Number: 2634190

PATIENT
  Age: 21 Year
  Sex: Male

DRUGS (2)
  1. METHOTREXATE [Suspect]
     Active Substance: METHOTREXATE
     Indication: NON-HODGKIN^S LYMPHOMA
     Dosage: CYCLICAL
     Route: 042
     Dates: start: 20140912, end: 20140917
  2. CYTARABINE. [Suspect]
     Active Substance: CYTARABINE
     Indication: NON-HODGKIN^S LYMPHOMA
     Dosage: CYCLICAL
     Route: 042
     Dates: start: 20140913, end: 20140919

REACTIONS (4)
  - Platelet count decreased [None]
  - White blood cell count decreased [None]
  - Haemoglobin decreased [None]
  - Febrile neutropenia [None]

NARRATIVE: CASE EVENT DATE: 20140921
